FAERS Safety Report 22185727 (Version 1)
Quarter: 2023Q2

REPORT INFORMATION
  Report Type: Spontaneous
  Country: US (occurrence: None)
  Receive Date: 20230406
  Receipt Date: 20230406
  Transmission Date: 20230721
  Serious: Yes (Other)
  Sender: FDA-Public Use
  Company Number: None

PATIENT
  Age: 80 Year
  Sex: Female

DRUGS (5)
  1. CAPECITABINE [Suspect]
     Active Substance: CAPECITABINE
     Indication: Colorectal cancer
     Dosage: FREQUENCY : TWICE A DAY;?OTHER ROUTE : OR TAKE DAY 1 TO 14;?
     Route: 048
     Dates: start: 20230126, end: 20230317
  2. ATORVASTATIN [Concomitant]
  3. BENAZEPRIL HYDROCHLORIDE AND HYDROCHLOROTHIAZIDE [Concomitant]
     Active Substance: BENAZEPRIL HYDROCHLORIDE\HYDROCHLOROTHIAZIDE
  4. METFORMIN [Concomitant]
  5. POTASSIUM CHLORIDE [Concomitant]
     Active Substance: POTASSIUM CHLORIDE

REACTIONS (5)
  - Paraesthesia [None]
  - Dry skin [None]
  - Skin exfoliation [None]
  - Ocular hyperaemia [None]
  - Skin erosion [None]

NARRATIVE: CASE EVENT DATE: 20230302
